FAERS Safety Report 23341948 (Version 1)
Quarter: 2023Q4

REPORT INFORMATION
  Report Type: Spontaneous
  Country: US (occurrence: None)
  Receive Date: 20231226
  Receipt Date: 20231226
  Transmission Date: 20240110
  Serious: Yes (Hospitalization)
  Sender: FDA-Public Use
  Company Number: None

PATIENT
  Age: 71 Year
  Sex: Male

DRUGS (1)
  1. KETOROLAC TROMETHAMINE [Suspect]
     Active Substance: KETOROLAC TROMETHAMINE
     Dosage: OTHER QUANTITY : 1 DROPS;?FREQUENCY : DAILY;?
     Route: 047
     Dates: start: 20231120, end: 20231201

REACTIONS (1)
  - Punctate keratitis [None]

NARRATIVE: CASE EVENT DATE: 20231201
